FAERS Safety Report 24351789 (Version 2)
Quarter: 2025Q1

REPORT INFORMATION
  Report Type: Report from Study
  Country: US (occurrence: US)
  Receive Date: 20240923
  Receipt Date: 20250108
  Transmission Date: 20250409
  Serious: Yes (Other)
  Sender: TAKEDA
  Company Number: US-TAKEDA-2022TUS015327

PATIENT
  Age: 67 Year
  Sex: Female
  Weight: 81.6 kg

DRUGS (32)
  1. HUMAN IMMUNOGLOBULIN G [Suspect]
     Active Substance: HUMAN IMMUNOGLOBULIN G
     Indication: Immune system disorder
     Dosage: 16 GRAM, Q2WEEKS
     Dates: start: 20210528
  2. HUMAN IMMUNOGLOBULIN G [Suspect]
     Active Substance: HUMAN IMMUNOGLOBULIN G
     Indication: Immunodeficiency common variable
  3. HUMAN IMMUNOGLOBULIN G [Suspect]
     Active Substance: HUMAN IMMUNOGLOBULIN G
     Indication: Hypergammaglobulinaemia
  4. ACETAMINOPHEN [Concomitant]
     Active Substance: ACETAMINOPHEN
  5. DIPHENHYDRAMINE [Concomitant]
     Active Substance: DIPHENHYDRAMINE
  6. LIDOCAINE [Concomitant]
     Active Substance: LIDOCAINE
  7. EPINEPHRINE [Concomitant]
     Active Substance: EPINEPHRINE
  8. SINGULAIR [Concomitant]
     Active Substance: MONTELUKAST SODIUM
  9. AMBIEN [Concomitant]
     Active Substance: ZOLPIDEM TARTRATE
  10. PRAVASTATIN SODIUM [Concomitant]
     Active Substance: PRAVASTATIN SODIUM
  11. CITALOPRAM [Concomitant]
     Active Substance: CITALOPRAM
  12. MESALAMINE [Concomitant]
     Active Substance: MESALAMINE
  13. ACETAMINOPHEN AND CODEINE [Concomitant]
     Active Substance: ACETAMINOPHEN\CODEINE PHOSPHATE
  14. ALENDRONATE SODIUM [Concomitant]
     Active Substance: ALENDRONATE SODIUM
  15. ALOE VERA LEAF [Concomitant]
     Active Substance: ALOE VERA LEAF
  16. LASIX [Concomitant]
     Active Substance: FUROSEMIDE
  17. MELOXICAM [Concomitant]
     Active Substance: MELOXICAM
  18. NP THYROID [Concomitant]
     Active Substance: LEVOTHYROXINE\LIOTHYRONINE
  19. TOPAMAX [Concomitant]
     Active Substance: TOPIRAMATE
  20. TIZANIDINE [Concomitant]
     Active Substance: TIZANIDINE
  21. CETIRIZINE HYDROCHLORIDE [Concomitant]
     Active Substance: CETIRIZINE HYDROCHLORIDE
  22. DIPHENHYDRAMINE HYDROCHLORIDE [Concomitant]
     Active Substance: DIPHENHYDRAMINE HYDROCHLORIDE
  23. Lmx [Concomitant]
  24. CETIRIZINE [Concomitant]
     Active Substance: CETIRIZINE HYDROCHLORIDE
  25. VITAMIN D3 [Concomitant]
     Active Substance: CHOLECALCIFEROL
  26. MINERALS\VITAMINS [Concomitant]
     Active Substance: MINERALS\VITAMINS
  27. VITAMIN B-COMPLEX [Concomitant]
     Active Substance: DEXPANTHENOL\NIACINAMIDE\PYRIDOXINE HYDROCHLORIDE\RIBOFLAVIN 5^-PHOSPHATE SODIUM\THIAMINE HYDROCHLOR
  28. PRAVASTATIN [Concomitant]
     Active Substance: PRAVASTATIN
  29. VITAMINS [Concomitant]
     Active Substance: VITAMINS
  30. ANASTROZOLE [Concomitant]
     Active Substance: ANASTROZOLE
  31. COMPAZINE [Concomitant]
     Active Substance: PROCHLORPERAZINE MALEATE
  32. KISQALI [Concomitant]
     Active Substance: RIBOCICLIB

REACTIONS (6)
  - Breast cancer female [Unknown]
  - Gastroenteritis viral [Unknown]
  - Bronchitis [Unknown]
  - Weight fluctuation [Unknown]
  - Product dose omission issue [Unknown]
  - Nausea [Unknown]

NARRATIVE: CASE EVENT DATE: 20250103
